FAERS Safety Report 6901526-9 (Version None)
Quarter: 2010Q3

REPORT INFORMATION
  Report Type: 
  Country: None (occurrence: None)
  Receive Date: 20100803
  Receipt Date: 20080213
  Transmission Date: 20110219
  Serious: Yes (Hospitalization, Other)
  Sender: FDA-Public Use
  Company Number: US-PFIZER INC-2008014271

PATIENT
  Sex: Male
  Weight: 108.18 kg

DRUGS (2)
  1. LYRICA [Suspect]
     Route: 048
     Dates: start: 20060401, end: 20070101
  2. INSULIN [Concomitant]

REACTIONS (8)
  - BLOOD GLUCOSE INCREASED [None]
  - COMA [None]
  - CONFUSIONAL STATE [None]
  - DYSPNOEA [None]
  - DYSURIA [None]
  - LOSS OF CONSCIOUSNESS [None]
  - VISION BLURRED [None]
  - WEIGHT DECREASED [None]
